FAERS Safety Report 23658386 (Version 1)
Quarter: 2024Q1

REPORT INFORMATION
  Report Type: Spontaneous
  Country: US (occurrence: US)
  Receive Date: 20240321
  Receipt Date: 20240321
  Transmission Date: 20240410
  Serious: No
  Sender: FDA-Public Use
  Company Number: US-Mission Pharmacal Company-2154624

PATIENT
  Age: 54 Year
  Sex: Female

DRUGS (2)
  1. THIOLA EC [Suspect]
     Active Substance: TIOPRONIN
     Route: 048
     Dates: start: 20231021
  2. POTASSIUM CITRATE [Concomitant]
     Active Substance: POTASSIUM CITRATE
     Route: 048

REACTIONS (1)
  - Drug ineffective [Unknown]
